FAERS Safety Report 5718369-4 (Version None)
Quarter: 2008Q2

REPORT INFORMATION
  Report Type: 
  Country: None (occurrence: None)
  Receive Date: 20080425
  Receipt Date: 20080415
  Transmission Date: 20081010
  Serious: Yes (Other)
  Sender: FDA-Public Use
  Company Number: IT-ELI_LILLY_AND_COMPANY-IT200804004325

PATIENT
  Sex: Male

DRUGS (4)
  1. GEMZAR [Suspect]
     Indication: BLADDER ADENOCARCINOMA STAGE UNSPECIFIED
     Dosage: 1600 MG, TOTAL
     Route: 042
     Dates: start: 20080404, end: 20080404
  2. CISPLATIN [Concomitant]
     Indication: BLADDER ADENOCARCINOMA STAGE UNSPECIFIED
     Dosage: 100 MG/TOTAL
     Route: 042
     Dates: start: 20080404, end: 20080404
  3. ALOXI [Concomitant]
     Indication: BLADDER ADENOCARCINOMA STAGE UNSPECIFIED
     Dosage: 250 UG, TOTAL
     Route: 042
     Dates: start: 20080404, end: 20080404
  4. OXYCONTIN [Concomitant]
     Indication: PAIN
     Dosage: 10 MG, UNKNOWN
     Route: 048

REACTIONS (1)
  - STEVENS-JOHNSON SYNDROME [None]
